FAERS Safety Report 18679004 (Version 1)
Quarter: 2020Q4

REPORT INFORMATION
  Report Type: Spontaneous
  Country: DE (occurrence: DE)
  Receive Date: 20201229
  Receipt Date: 20201229
  Transmission Date: 20210114
  Serious: Yes (Other)
  Sender: FDA-Public Use
  Company Number: US-ASTRAZENECA-2014SE53725

PATIENT
  Sex: Male

DRUGS (7)
  1. ATORVASTATIN [Concomitant]
     Active Substance: ATORVASTATIN
  2. FALITHROM [Concomitant]
     Active Substance: PHENPROCOUMON
  3. FORXIGA [Suspect]
     Active Substance: DAPAGLIFLOZIN
     Dosage: 10.0MG UNKNOWN
     Route: 048
  4. TELMISARTAN. [Concomitant]
     Active Substance: TELMISARTAN
  5. LANTUS [Concomitant]
     Active Substance: INSULIN GLARGINE
  6. ALLOPURINOL. [Concomitant]
     Active Substance: ALLOPURINOL
  7. EUCREAS [Concomitant]
     Active Substance: METFORMIN HYDROCHLORIDE\VILDAGLIPTIN

REACTIONS (1)
  - Phimosis [Unknown]
